FAERS Safety Report 5104408-0 (Version None)
Quarter: 2006Q3

REPORT INFORMATION
  Report Type: 
  Country: None (occurrence: None)
  Receive Date: 20060908
  Receipt Date: 20060908
  Transmission Date: 20061208
  Serious: Yes (Hospitalization)
  Sender: FDA-Public Use
  Company Number: None

PATIENT
  Age: 63 Year
  Sex: Male
  Weight: 76.2043 kg

DRUGS (2)
  1. CEFTAZIDIME [Suspect]
     Indication: WOUND INFECTION
     Dosage: 1 GM Q8HS IV
     Route: 042
     Dates: start: 20060828, end: 20060905
  2. LEVOFLOXACIN [Suspect]
     Indication: WOUND
     Dosage: 750 MG DAILY IV
     Route: 042
     Dates: start: 20060823, end: 20060828

REACTIONS (1)
  - CLOSTRIDIAL INFECTION [None]
